FAERS Safety Report 9727057 (Version 3)
Quarter: 2015Q2

REPORT INFORMATION
  Report Type: Spontaneous
  Country: US (occurrence: US)
  Receive Date: 20131203
  Receipt Date: 20150430
  Transmission Date: 20150821
  Serious: Yes (Hospitalization)
  Sender: FDA-Public Use
  Company Number: US-BAYER-2013-143776

PATIENT
  Age: 42 Year
  Sex: Female
  Weight: 65.76 kg

DRUGS (7)
  1. KLONOPIN [Concomitant]
     Active Substance: CLONAZEPAM
     Indication: ANXIETY
     Dosage: UNK
     Dates: start: 2007, end: 2009
  2. NEXIUM [Concomitant]
     Active Substance: ESOMEPRAZOLE MAGNESIUM
     Indication: GASTROOESOPHAGEAL REFLUX DISEASE
     Dosage: UNK
     Dates: start: 2007, end: 2009
  3. HYDROCHLOROTHIAZIDE. [Concomitant]
     Active Substance: HYDROCHLOROTHIAZIDE
     Indication: SWELLING
     Dosage: 50 MG, TAKE 1 TO 2 TABLETS EVERY MORNING
     Dates: start: 2007, end: 2008
  4. HYDROCHLOROTHIAZIDE. [Concomitant]
     Active Substance: HYDROCHLOROTHIAZIDE
     Indication: FLUID RETENTION
  5. YAZ [Suspect]
     Active Substance: DROSPIRENONE\ETHINYL ESTRADIOL
     Indication: PREMENSTRUAL SYNDROME
  6. LEXAPRO [Concomitant]
     Active Substance: ESCITALOPRAM OXALATE
  7. YAZ [Suspect]
     Active Substance: DROSPIRENONE\ETHINYL ESTRADIOL
     Indication: CONTRACEPTION
     Dosage: UNK
     Route: 048
     Dates: start: 20080415, end: 20080514

REACTIONS (10)
  - Muscular weakness [Recovering/Resolving]
  - General physical health deterioration [Recovering/Resolving]
  - Emotional distress [None]
  - Anxiety [None]
  - Pain [Recovering/Resolving]
  - Pain [None]
  - Injury [Recovering/Resolving]
  - Mental disorder [None]
  - Cerebrovascular accident [Recovering/Resolving]
  - Lacunar infarction [None]

NARRATIVE: CASE EVENT DATE: 20080514
